FAERS Safety Report 5983937-1 (Version None)
Quarter: 2008Q4

REPORT INFORMATION
  Report Type: 
  Country: None (occurrence: None)
  Receive Date: 20081208
  Receipt Date: 20081204
  Transmission Date: 20090506
  Serious: Yes (Death, Hospitalization)
  Sender: FDA-Public Use
  Company Number: GB-JNJCH-2008056276

PATIENT
  Age: 8 Month
  Sex: Male

DRUGS (3)
  1. ACETAMINOPHEN [Suspect]
     Indication: TONSILLITIS
     Dosage: TEXT:UNSPECIFIED
     Route: 065
  2. IBUPROFEN TABLETS [Suspect]
     Indication: TONSILLITIS
     Dosage: TEXT:UNSPECIFIED
     Route: 065
  3. PENICILLIN [Suspect]
     Indication: TONSILLITIS
     Dosage: TEXT:UNSPECIFIED
     Route: 065

REACTIONS (4)
  - CYANOSIS [None]
  - HEART RATE ABNORMAL [None]
  - RASH [None]
  - SEPSIS [None]
